FAERS Safety Report 6702637-3 (Version None)
Quarter: 2010Q2

REPORT INFORMATION
  Report Type: 
  Country: None (occurrence: None)
  Receive Date: 20100429
  Receipt Date: 20100419
  Transmission Date: 20101027
  Serious: Yes (Death, Other)
  Sender: FDA-Public Use
  Company Number: US-AMGEN-KDC407981

PATIENT

DRUGS (15)
  1. NEUPOGEN [Suspect]
     Indication: PERIPHERAL BLOOD STEM CELL APHERESIS
     Route: 058
  2. RITUXIMAB [Suspect]
     Route: 042
  3. SULFAMETHOXAZOLE AND TRIMETHOPRIM [Suspect]
     Route: 048
  4. METHOTREXATE [Suspect]
     Route: 042
  5. LEUCOVORIN CALCIUM [Suspect]
     Route: 042
  6. CYCLOPHOSPHAMIDE [Suspect]
     Route: 042
  7. DOXORUBICIN HCL [Suspect]
     Route: 042
  8. VINCRISTINE [Suspect]
     Route: 042
  9. PREDNISONE [Suspect]
     Route: 048
  10. LEVOFLOXACIN [Suspect]
     Route: 048
  11. FLUCONAZOLE [Suspect]
     Route: 048
  12. ETOPOSIDE [Suspect]
     Route: 042
  13. CYTARABINE [Suspect]
     Route: 042
  14. ACYCLOVIR [Suspect]
     Route: 048
  15. CARMUSTINE [Suspect]
     Route: 042

REACTIONS (14)
  - ANAEMIA [None]
  - CARDIOTOXICITY [None]
  - CIRCULATORY COLLAPSE [None]
  - FEBRILE NEUTROPENIA [None]
  - GASTROINTESTINAL TOXICITY [None]
  - HAEMATOTOXICITY [None]
  - HEPATOTOXICITY [None]
  - INFECTION [None]
  - NEPHROPATHY TOXIC [None]
  - NERVOUS SYSTEM DISORDER [None]
  - PULMONARY TOXICITY [None]
  - RENAL FAILURE ACUTE [None]
  - SEPSIS [None]
  - SKIN TOXICITY [None]
